FAERS Safety Report 19589150 (Version 1)
Quarter: 2021Q3

REPORT INFORMATION
  Report Type: Report from Study
  Country: IT (occurrence: IT)
  Receive Date: 20210721
  Receipt Date: 20210721
  Transmission Date: 20211014
  Serious: Yes (Hospitalization)
  Sender: FDA-Public Use
  Company Number: IT-PFIZER INC-2021842906

PATIENT
  Age: 77 Year
  Sex: Male
  Weight: 126 kg

DRUGS (5)
  1. LASIX [Interacting]
     Active Substance: FUROSEMIDE
     Indication: HYPERTENSION
     Dosage: 50 MG, 1X/DAY
     Route: 048
     Dates: start: 20210511, end: 20210611
  2. CARDIOASPIRIN [Concomitant]
     Active Substance: ASPIRIN
     Dosage: 100 MG
     Route: 048
  3. ETOPOSIDE TEVA [Concomitant]
     Active Substance: ETOPOSIDE
     Indication: LUNG NEOPLASM MALIGNANT
     Dosage: 200 MG
     Route: 042
     Dates: start: 20210525, end: 20210525
  4. REVINTY ELLIPTA [Concomitant]
     Active Substance: FLUTICASONE FUROATE\VILANTEROL TRIFENATATE
  5. CARBOPLATINO PFIZER ITALIA [Suspect]
     Active Substance: CARBOPLATIN
     Indication: LUNG NEOPLASM MALIGNANT
     Dosage: 708 MG (450 MG/45 ML), CYCLIC
     Route: 042
     Dates: start: 20210524, end: 20210524

REACTIONS (6)
  - Pain in extremity [Recovered/Resolved]
  - Asthenia [Recovered/Resolved]
  - Drug interaction [Recovered/Resolved]
  - Hypomagnesaemia [Recovered/Resolved]
  - Muscle spasms [Recovered/Resolved]
  - Hypocalcaemia [Recovered/Resolved]

NARRATIVE: CASE EVENT DATE: 20210607
